FAERS Safety Report 5832497-4 (Version None)
Quarter: 2008Q3

REPORT INFORMATION
  Report Type: 
  Country: None (occurrence: None)
  Receive Date: 20080804
  Receipt Date: 20080722
  Transmission Date: 20090109
  Serious: Yes (Other)
  Sender: FDA-Public Use
  Company Number: FR-NOVOPROD-276259

PATIENT
  Age: 71 Year
  Sex: Female
  Weight: 64 kg

DRUGS (8)
  1. NORDITROPIN [Suspect]
     Indication: GROWTH HORMONE DEFICIENCY
     Dosage: .4 MG, QD
     Route: 058
     Dates: start: 19980101
  2. TAHOR [Concomitant]
     Dosage: 40 MG, QD
     Route: 048
     Dates: start: 20070420
  3. TANAKAN                            /01003103/ [Concomitant]
     Dosage: 3 CAPS, QD
     Route: 048
     Dates: start: 20061001
  4. PLAVIX [Concomitant]
     Dosage: 75 MG, QD
     Route: 048
     Dates: start: 20010101
  5. HYDROCORTISONE [Concomitant]
     Dosage: 20 MG, QD
     Route: 048
     Dates: start: 20070130
  6. ACTONEL [Concomitant]
     Dosage: 35 MG, QD
     Route: 048
     Dates: start: 20071029
  7. OSTRAM                             /00108001/ [Concomitant]
     Dosage: 1 UNK, QD
     Route: 048
     Dates: start: 19860101
  8. LEVOTHYROX [Concomitant]
     Dosage: 75 UG, QD
     Route: 048
     Dates: start: 20000101

REACTIONS (3)
  - DISCOMFORT [None]
  - LOSS OF CONSCIOUSNESS [None]
  - PNEUMONIA BACTERIAL [None]
